FAERS Safety Report 9193266 (Version 1)
Quarter: 2013Q1

REPORT INFORMATION
  Report Type: Spontaneous
  Country: US (occurrence: None)
  Receive Date: 20120703
  Receipt Date: 20120703
  Transmission Date: 20140127
  Serious: Yes (Other)
  Sender: FDA-Public Use
  Company Number: PHEH2012US009855

PATIENT
  Age: 64 Year
  Sex: Female
  Weight: 76.2 kg

DRUGS (7)
  1. GILENYA (FTY) CAPSULE, 0.5MG [Suspect]
     Indication: MULTIPLE SCLEROSIS
     Route: 048
     Dates: start: 20120406
  2. LISINOPRIL (LISINOPRIL) [Concomitant]
  3. LISINOPRIL (LISINOPRIL) [Concomitant]
  4. THIORIDAZINE (THIORIDAZINE) [Concomitant]
  5. LEVOTHYROXINE (LEVOTHYROXINE) [Concomitant]
  6. MELOXICAM (MELOXICAM) [Concomitant]
  7. AMLODIPINE (AMLODIPINE) [Concomitant]

REACTIONS (4)
  - Blood pressure increased [None]
  - Sensation of heaviness [None]
  - Weight decreased [None]
  - Feeling abnormal [None]
